FAERS Safety Report 16715807 (Version 1)
Quarter: 2019Q4

REPORT INFORMATION
  Report Type: Spontaneous
  Country: US (occurrence: US)
  Receive Date: 20190817
  Receipt Date: 20190817
  Transmission Date: 20200122
  Serious: No
  Sender: FDA-Public Use
  Company Number: None

PATIENT
  Age: 50 Year
  Sex: Female
  Weight: 60.75 kg

DRUGS (10)
  1. ASACOL [Concomitant]
     Active Substance: MESALAMINE
  2. XELJANZ [Concomitant]
     Active Substance: TOFACITINIB CITRATE
  3. VITAMIN D [Concomitant]
     Active Substance: VITAMIN D NOS
  4. MAGNESIUM [Concomitant]
     Active Substance: MAGNESIUM
  5. ELIDEL [Concomitant]
     Active Substance: PIMECROLIMUS
  6. VITAMIN E [Concomitant]
     Active Substance: .ALPHA.-TOCOPHEROL
  7. CENTRUM VITAMIN [Concomitant]
  8. XELJANZ [Suspect]
     Active Substance: TOFACITINIB CITRATE
     Indication: COLITIS ULCERATIVE
     Dosage: ?          QUANTITY:1 TABLET(S);?
     Route: 048
     Dates: start: 20190601
  9. METRONIDAZOLE. [Concomitant]
     Active Substance: METRONIDAZOLE
  10. DUAVEE [Concomitant]
     Active Substance: BAZEDOXIFENE ACETATE\ESTROGENS, CONJUGATED

REACTIONS (1)
  - Acne [None]

NARRATIVE: CASE EVENT DATE: 20190603
